FAERS Safety Report 13241659 (Version 3)
Quarter: 2018Q1

REPORT INFORMATION
  Report Type: Spontaneous
  Country: US (occurrence: US)
  Receive Date: 20170217
  Receipt Date: 20180214
  Transmission Date: 20180508
  Serious: No
  Sender: FDA-Public Use
  Company Number: US-PFIZER INC-2017068734

PATIENT
  Age: 54 Year
  Sex: Female
  Weight: 77 kg

DRUGS (22)
  1. ZOFRAN [Concomitant]
     Active Substance: ONDANSETRON HYDROCHLORIDE
     Dosage: 8 MG, 2X/DAY
     Route: 048
  2. DEPLIN [Concomitant]
     Active Substance: LEVOMEFOLATE CALCIUM
     Dosage: 7.5 MG, DAILY
     Route: 048
  3. VITAMIN D3 [Concomitant]
     Active Substance: CHOLECALCIFEROL
     Dosage: 5000 IU, 2X/DAY
     Route: 048
  4. ZANTAC [Concomitant]
     Active Substance: RANITIDINE HYDROCHLORIDE
     Dosage: 150 MG, 2X/DAY
     Route: 048
  5. GENOTROPIN MQ [Suspect]
     Active Substance: SOMATROPIN
     Indication: GROWTH HORMONE DEFICIENCY
     Dosage: 0.2 MG, DAILY
     Route: 058
     Dates: start: 20110810
  6. PREDNISONE. [Concomitant]
     Active Substance: PREDNISONE
     Dosage: 500 MG, DAILY
  7. MYCELEX [Concomitant]
     Active Substance: CLOTRIMAZOLE
     Dosage: 10 MG, UNK [10MG BY MOUTH FIVE TIMES PER DAY]
     Route: 048
  8. PREDNISONE. [Concomitant]
     Active Substance: PREDNISONE
     Dosage: 8 MG, DAILY
     Route: 048
  9. GENOTROPIN MQ [Suspect]
     Active Substance: SOMATROPIN
     Dosage: 0.2 MG, 1X/2DAY
     Route: 058
     Dates: start: 2012
  10. TOPAMAX [Concomitant]
     Active Substance: TOPIRAMATE
     Dosage: 50 MG, DAILY
     Route: 048
  11. PREDNISONE. [Concomitant]
     Active Substance: PREDNISONE
     Dosage: 60 MG, 1X/DAY
  12. GENOTROPIN MQ [Suspect]
     Active Substance: SOMATROPIN
     Dosage: 0.2 MG, DAILY
     Route: 058
     Dates: start: 201109
  13. PLAQUENIL [Concomitant]
     Active Substance: HYDROXYCHLOROQUINE SULFATE
     Dosage: 200 MG, DAILY (EVERY DAY)
     Route: 048
  14. COLCHICINE. [Concomitant]
     Active Substance: COLCHICINE
     Dosage: 0.6 MG, DAILY
     Route: 048
  15. MAGNESIUM GLYCINATE [Concomitant]
     Active Substance: MAGNESIUM GLYCINATE
     Dosage: 400 MG, UNK
     Route: 048
  16. NYSTATIN. [Concomitant]
     Active Substance: NYSTATIN
     Dosage: UNK (100 MILLION UNIT MISC POWD)
  17. PREDNISONE. [Concomitant]
     Active Substance: PREDNISONE
     Indication: HORMONE REPLACEMENT THERAPY
     Dosage: 9 MG, DAILY
     Route: 048
  18. PREDNISONE. [Concomitant]
     Active Substance: PREDNISONE
     Dosage: 8.5 MG, DAILY
  19. EVAMIST [Concomitant]
     Active Substance: ESTRADIOL
     Dosage: 3X/DAY
     Route: 061
  20. PREDNISONE. [Concomitant]
     Active Substance: PREDNISONE
     Dosage: 13 MG, UNK
  21. VITAMIN E [Concomitant]
     Active Substance: .ALPHA.-TOCOPHEROL
     Dosage: UNK, DAILY
  22. METHOTREXATE SODIUM. [Concomitant]
     Active Substance: METHOTREXATE SODIUM
     Dosage: 25 MG, WEEKLY

REACTIONS (9)
  - Hair growth abnormal [Unknown]
  - Depressed mood [Unknown]
  - Acne [Unknown]
  - Headache [Unknown]
  - Condition aggravated [Unknown]
  - Condition aggravated [Unknown]
  - Tachycardia [Unknown]
  - Emotional disorder [Unknown]
  - Insulin-like growth factor increased [Unknown]

NARRATIVE: CASE EVENT DATE: 2011
